FAERS Safety Report 5300594-8 (Version None)
Quarter: 2007Q2

REPORT INFORMATION
  Report Type: 
  Country: None (occurrence: None)
  Receive Date: 20070418
  Receipt Date: 20061013
  Transmission Date: 20071010
  Serious: Yes (Other)
  Sender: FDA-Public Use
  Company Number: DE-GLAXOSMITHKLINE-B0466616A

PATIENT
  Age: 40 Year
  Sex: Female

DRUGS (2)
  1. FORMIGRAN [Suspect]
     Indication: DRUG USE FOR UNKNOWN INDICATION
  2. TRIPTANOL [Concomitant]

REACTIONS (2)
  - HAEMATURIA [None]
  - RENAL HAEMORRHAGE [None]
